FAERS Safety Report 5519871-0 (Version None)
Quarter: 2007Q4

REPORT INFORMATION
  Report Type: 
  Country: None (occurrence: None)
  Receive Date: 20071116
  Receipt Date: 20070927
  Transmission Date: 20080405
  Serious: Yes (Other)
  Sender: FDA-Public Use
  Company Number: A0685370A

PATIENT
  Age: 55 Year
  Sex: Female

DRUGS (2)
  1. COREG CR [Suspect]
     Indication: HYPERTENSION
     Dosage: 20MG PER DAY
     Route: 048
     Dates: start: 20070922, end: 20070924
  2. TOPROL-XL [Concomitant]
     Indication: HYPERTENSION
     Dosage: 50MG UNKNOWN
     Route: 065

REACTIONS (2)
  - BRADYCARDIA [None]
  - HYPOTENSION [None]
